FAERS Safety Report 15879399 (Version 1)
Quarter: 2019Q1

REPORT INFORMATION
  Report Type: Spontaneous
  Country: US (occurrence: US)
  Receive Date: 20190126
  Receipt Date: 20190126
  Transmission Date: 20190417
  Serious: Yes (Other)
  Sender: FDA-Public Use
  Company Number: None

PATIENT
  Age: 43 Year
  Sex: Female
  Weight: 77.85 kg

DRUGS (10)
  1. CLONAZEPAM. [Suspect]
     Active Substance: CLONAZEPAM
     Indication: INSOMNIA
     Dosage: ?          QUANTITY:90 TABLET(S);?
     Route: 048
     Dates: start: 20190105, end: 20190125
  2. COREG 25MG BID [Concomitant]
  3. ZOLOFT 100MG PO QAM [Concomitant]
  4. FLINESTONE MULTIVITAMIN [Concomitant]
  5. LOSARTEN 50MG PO QHS [Concomitant]
  6. CLONAZEPAM 1MG PO QHS [Concomitant]
  7. VITAMIN D [Concomitant]
     Active Substance: CHOLECALCIFEROL
  8. CALCIUM SUPPLEMENTS [Concomitant]
     Active Substance: CALCIUM
  9. FLEXERIL 10MG PO QHS [Concomitant]
  10. CLONAZEPAM. [Suspect]
     Active Substance: CLONAZEPAM
     Indication: ANXIETY
     Dosage: ?          QUANTITY:90 TABLET(S);?
     Route: 048
     Dates: start: 20190105, end: 20190125

REACTIONS (6)
  - Irritability [None]
  - Product substitution issue [None]
  - Insomnia [None]
  - Agitation [None]
  - Drug ineffective [None]
  - Anxiety [None]

NARRATIVE: CASE EVENT DATE: 20190126
